FAERS Safety Report 25424911 (Version 1)
Quarter: 2025Q2

REPORT INFORMATION
  Report Type: Spontaneous
  Country: US (occurrence: US)
  Receive Date: 20250611
  Receipt Date: 20250611
  Transmission Date: 20250716
  Serious: Yes (Other)
  Sender: MYLAN
  Company Number: US-MYLANLABS-2025M1046127

PATIENT
  Sex: Female
  Weight: 88.45 kg

DRUGS (4)
  1. EFFEXOR XR EXTENDED-RELEASE [Suspect]
     Active Substance: VENLAFAXINE HYDROCHLORIDE
     Indication: Depression
     Dosage: UNK, TID (3 TIMES A DAY)
  2. METOPROLOL [Concomitant]
     Active Substance: METOPROLOL
  3. ASPIRIN [Concomitant]
     Active Substance: ASPIRIN
  4. FUROSEMIDE [Concomitant]
     Active Substance: FUROSEMIDE

REACTIONS (4)
  - Hip fracture [Unknown]
  - Illness [Unknown]
  - Product substitution issue [Unknown]
  - Drug ineffective [Unknown]
